FAERS Safety Report 4562392-2 (Version None)
Quarter: 2005Q1

REPORT INFORMATION
  Report Type: 
  Country: None (occurrence: None)
  Receive Date: 20050127
  Receipt Date: 20040303
  Transmission Date: 20050727
  Serious: Yes (Other)
  Sender: FDA-Public Use
  Company Number: US-BRISTOL-MYERS SQUIBB COMPANY-12523767

PATIENT
  Sex: Male

DRUGS (1)
  1. KENALOG [Suspect]
     Indication: DERMATITIS ATOPIC
     Dosage: ROUTE: INJECTION
     Dates: start: 20020212, end: 20020212

REACTIONS (15)
  - ACNE [None]
  - ALOPECIA [None]
  - ASTHENIA [None]
  - CHEST DISCOMFORT [None]
  - CUSHING'S SYNDROME [None]
  - HYPERTENSION [None]
  - INSOMNIA [None]
  - IRRITABILITY [None]
  - OILY SKIN [None]
  - OVERDOSE [None]
  - PAIN [None]
  - SCAR [None]
  - SKIN STRIAE [None]
  - TREMOR [None]
  - WEIGHT INCREASED [None]
